FAERS Safety Report 5121105-6 (Version None)
Quarter: 2006Q4

REPORT INFORMATION
  Report Type: 
  Country: None (occurrence: None)
  Receive Date: 20061002
  Receipt Date: 20060920
  Transmission Date: 20070319
  Serious: Yes (Death)
  Sender: FDA-Public Use
  Company Number: 2006113158

PATIENT
  Sex: Male

DRUGS (2)
  1. VFEND [Suspect]
     Indication: CANDIDIASIS
  2. VFEND [Suspect]
     Indication: PERITONITIS

REACTIONS (1)
  - DEATH [None]
